FAERS Safety Report 11019833 (Version 2)
Quarter: 2015Q2

REPORT INFORMATION
  Report Type: Spontaneous
  Country: US (occurrence: US)
  Receive Date: 20150412
  Receipt Date: 20150525
  Transmission Date: 20150821
  Serious: Yes (Hospitalization)
  Sender: FDA-Public Use
  Company Number: US-JNJFOC-20111008344

PATIENT
  Sex: Female

DRUGS (13)
  1. LEVAQUIN [Suspect]
     Active Substance: LEVOFLOXACIN
     Indication: PNEUMONIA
     Route: 048
     Dates: start: 20100125, end: 201002
  2. ADVAIR HFA [Concomitant]
     Active Substance: FLUTICASONE PROPIONATE\SALMETEROL XINAFOATE
     Route: 065
  3. MUCINEX [Concomitant]
     Active Substance: GUAIFENESIN
     Route: 065
  4. ASPIRIN. [Concomitant]
     Active Substance: ASPIRIN
     Route: 065
  5. ZESTRIL [Concomitant]
     Active Substance: LISINOPRIL
     Route: 048
  6. COMBIVENT [Concomitant]
     Active Substance: ALBUTEROL SULFATE\IPRATROPIUM BROMIDE
     Route: 065
  7. PROCARDIA XL [Concomitant]
     Active Substance: NIFEDIPINE
     Route: 048
  8. LASIX [Concomitant]
     Active Substance: FUROSEMIDE
     Route: 048
  9. FLAGYL [Concomitant]
     Active Substance: METRONIDAZOLE\METRONIDAZOLE HYDROCHLORIDE
     Route: 048
  10. ZOCOR [Concomitant]
     Active Substance: SIMVASTATIN
     Route: 048
  11. AMARYL [Concomitant]
     Active Substance: GLIMEPIRIDE
     Route: 048
  12. LOTRISONE [Concomitant]
     Active Substance: BETAMETHASONE DIPROPIONATE\CLOTRIMAZOLE
     Indication: RASH
     Route: 065
  13. LOPRESSOR [Concomitant]
     Active Substance: METOPROLOL TARTRATE
     Route: 048

REACTIONS (1)
  - Stevens-Johnson syndrome [Not Recovered/Not Resolved]
